FAERS Safety Report 4975118-5 (Version None)
Quarter: 2006Q2

REPORT INFORMATION
  Report Type: 
  Country: None (occurrence: None)
  Receive Date: 20060414
  Receipt Date: 20060414
  Transmission Date: 20061013
  Serious: Yes (Hospitalization, Other)
  Sender: FDA-Public Use
  Company Number: None

PATIENT
  Age: 25 Year
  Sex: Female
  Weight: 45.3597 kg

DRUGS (2)
  1. ESTROSTEP [Suspect]
     Indication: CONTRACEPTION
     Dosage: ONE PILL DAILY
     Dates: start: 20050501, end: 20051217
  2. ORTHO [Suspect]
     Dosage: ONE PILL A DAY
     Dates: start: 20051223, end: 20060326

REACTIONS (6)
  - BREAST PAIN [None]
  - CERVICAL DYSPLASIA [None]
  - HUMAN PAPILLOMA VIRUS TEST POSITIVE [None]
  - METRORRHAGIA [None]
  - MOOD SWINGS [None]
  - PAPILLOMA VIRAL INFECTION [None]
